FAERS Safety Report 10505327 (Version 1)
Quarter: 2014Q3

REPORT INFORMATION
  Report Type: Spontaneous
  Country: US (occurrence: None)
  Receive Date: 20140915
  Receipt Date: 20140915
  Transmission Date: 20150326
  Serious: Yes (Other)
  Sender: FDA-Public Use
  Company Number: 2014-US-007736

PATIENT
  Age: 24 Year
  Sex: Female

DRUGS (1)
  1. XYREM [Suspect]
     Active Substance: SODIUM OXYBATE
     Indication: NARCOLEPSY
     Route: 048
     Dates: start: 201311

REACTIONS (8)
  - Chest pain [None]
  - Weight decreased [None]
  - Depressed mood [None]
  - Heart rate irregular [None]
  - Decreased appetite [None]
  - Pollakiuria [None]
  - Hyperhidrosis [None]
  - Thirst [None]

NARRATIVE: CASE EVENT DATE: 201405
